FAERS Safety Report 7009788-7 (Version None)
Quarter: 2010Q3

REPORT INFORMATION
  Report Type: 
  Country: None (occurrence: None)
  Receive Date: 20100923
  Receipt Date: 20100913
  Transmission Date: 20110219
  Serious: Yes (Hospitalization)
  Sender: FDA-Public Use
  Company Number: US-ROCHE-723765

PATIENT
  Age: 45 Year
  Sex: Male
  Weight: 81.7 kg

DRUGS (3)
  1. CAPECITABINE [Suspect]
     Dosage: FORM: PILLS
     Route: 048
     Dates: start: 20100629, end: 20100802
  2. CAPECITABINE [Suspect]
     Dosage: TOOK CAPECITABINE 8 PILLS IN EVENING
     Route: 048
     Dates: start: 20100803, end: 20100803
  3. OXALIPLATIN [Suspect]
     Dosage: ROUTE: SUBCUTANEOUS
     Route: 042
     Dates: start: 20100629, end: 20100726

REACTIONS (5)
  - GUILLAIN-BARRE SYNDROME [None]
  - HYPONATRAEMIA [None]
  - PERIPHERAL MOTOR NEUROPATHY [None]
  - PERIPHERAL SENSORY NEUROPATHY [None]
  - RESPIRATORY DISTRESS [None]
